FAERS Safety Report 5256737-8 (Version None)
Quarter: 2007Q1

REPORT INFORMATION
  Report Type: 
  Country: None (occurrence: None)
  Receive Date: 20070306
  Receipt Date: 20070226
  Transmission Date: 20070707
  Serious: Yes (Other)
  Sender: FDA-Public Use
  Company Number: JP-BRISTOL-MYERS SQUIBB COMPANY-13702105

PATIENT
  Age: 63 Year
  Sex: Female

DRUGS (1)
  1. GATIFLO TABS 100 MG [Suspect]
     Indication: SEPSIS
     Route: 048

REACTIONS (1)
  - HYPERGLYCAEMIA [None]
